FAERS Safety Report 8562446-X (Version None)
Quarter: 2012Q3

REPORT INFORMATION
  Report Type: 
  Country: None (occurrence: None)
  Receive Date: 20120802
  Receipt Date: 20120710
  Transmission Date: 20120928
  Serious: No
  Sender: FDA-Public Use
  Company Number: US-AMGEN-USASP2012039287

PATIENT
  Age: 37 Year
  Sex: Female
  Weight: 72.562 kg

DRUGS (6)
  1. LIPITOR [Concomitant]
     Indication: BLOOD CHOLESTEROL INCREASED
     Dosage: 10 MG, QD
     Route: 048
  2. TACLONEX [Concomitant]
     Indication: PSORIASIS
     Dosage: UNK UNK, QD
     Route: 061
  3. CLOBETASOL PROPIONATE [Concomitant]
     Indication: PSORIASIS
     Dosage: UNK UNK, QD
     Route: 061
  4. OMEPRAZOLE [Concomitant]
     Indication: GASTROOESOPHAGEAL REFLUX DISEASE
     Dosage: 20 MG, QD
     Route: 048
  5. ENBREL [Suspect]
     Indication: PSORIASIS
     Dosage: 50 MG, 2 TIMES/WK
     Route: 058
     Dates: start: 20120529
  6. CELEBREX [Concomitant]
     Indication: ARTHRITIS
     Dosage: 100 MG, QD
     Route: 048

REACTIONS (3)
  - INJECTION SITE PAIN [None]
  - INJECTION SITE HAEMORRHAGE [None]
  - INJECTION SITE HAEMATOMA [None]
